FAERS Safety Report 6409607-3 (Version None)
Quarter: 2009Q4

REPORT INFORMATION
  Report Type: 
  Country: None (occurrence: None)
  Receive Date: 20091022
  Receipt Date: 20091009
  Transmission Date: 20100525
  Serious: Yes (Life-Threatening, Other)
  Sender: FDA-Public Use
  Company Number: GB-PFIZER INC-2009270126

PATIENT
  Age: 53 Year

DRUGS (8)
  1. CHAMPIX [Suspect]
     Indication: SMOKING CESSATION THERAPY
     Dosage: 1 MG, UNK
     Route: 048
     Dates: start: 20080819, end: 20090831
  2. ACETYLSALICYLIC ACID [Concomitant]
  3. BENDROFLUMETHIAZIDE [Concomitant]
  4. BISOPROLOL FUMARATE [Concomitant]
  5. CANDESARTAN [Concomitant]
  6. SERETIDE [Concomitant]
  7. SIMVASTATIN [Concomitant]
  8. VENTOLIN [Concomitant]

REACTIONS (6)
  - CHEST PAIN [None]
  - DIZZINESS [None]
  - EPISTAXIS [None]
  - MIGRAINE [None]
  - NAUSEA [None]
  - NECK PAIN [None]
